FAERS Safety Report 18566710 (Version 1)
Quarter: 2020Q4

REPORT INFORMATION
  Report Type: Other
  Country: BR (occurrence: BR)
  Receive Date: 20201201
  Receipt Date: 20201201
  Transmission Date: 20210114
  Serious: Yes (Hospitalization)
  Sender: FDA-Public Use
  Company Number: BR-GENUS_LIFESCIENCES-USA-POI0580202000220

PATIENT
  Age: 36 Year
  Sex: Male

DRUGS (1)
  1. GOPRELTO [Suspect]
     Active Substance: COCAINE HYDROCHLORIDE
     Indication: DRUG ABUSE
     Dates: end: 2020

REACTIONS (2)
  - Renal artery dissection [Recovered/Resolved]
  - Vertebral artery dissection [Recovered/Resolved]

NARRATIVE: CASE EVENT DATE: 2020
